FAERS Safety Report 7959565-5 (Version None)
Quarter: 2011Q4

REPORT INFORMATION
  Report Type: 
  Country: None (occurrence: None)
  Receive Date: 20111206
  Receipt Date: 20111124
  Transmission Date: 20120403
  Serious: Yes (Hospitalization)
  Sender: FDA-Public Use
  Company Number: JP-UCBSA-039315

PATIENT
  Age: 58 Year
  Sex: Female

DRUGS (19)
  1. KETOPROFEN [Concomitant]
     Dosage: ADEQUATE DOSE, PRN.
     Dates: start: 20101014
  2. BUCILLAMINE [Concomitant]
     Dosage: TOTAL DAILY DOSE : 200 MG
     Dates: start: 20110723
  3. MECOBALAMIN [Concomitant]
     Dosage: TOTAL DAILY DOSE : 1500 MCG
     Dates: start: 20110808
  4. BLOCK INJECTION [Concomitant]
     Dosage: TOTAL DAILY DOSE :
     Dates: start: 20110808
  5. CERTOLIZUMAB PEGOL [Suspect]
     Route: 058
     Dates: start: 20100525, end: 20110422
  6. FAMOTIDINE [Concomitant]
     Dosage: TOTAL DAILY DOSE: 40 MG
     Dates: start: 20100401
  7. VALSARTAN [Concomitant]
     Dosage: TOTAL DAILY DOSE: 80 MG
     Dates: start: 20021126
  8. CERTOLIZUMAB PEGOL [Suspect]
     Indication: RHEUMATOID ARTHRITIS
     Route: 058
     Dates: start: 20110520, end: 20110802
  9. ACTARIT [Concomitant]
     Dosage: TOTAL DAILY DOSE : 300 MG
  10. NILVADIPINE [Concomitant]
     Dosage: TOTAL DAILY DOSE : 4 MG
     Dates: start: 20100803
  11. LOXOPROFEN SODIUM HYDRATE [Concomitant]
     Dosage: TOTAL DAILY DOSE : 120 MG
     Dates: start: 20110822, end: 20110912
  12. LOXOPROFEN SODIUM HYDRATE [Concomitant]
     Dosage: DAILY DOSE: 60MG
     Dates: start: 20110913
  13. CERTOLIZUMAB PEGOL [Suspect]
     Dosage: RA0006: 10/NOV/2009-UNKNOWN:400MG/2 WEEKS;UNKNOWN TO 13/MAY/2010-200MG/2WEEKS
     Route: 058
     Dates: start: 20091110, end: 20100513
  14. FAMOTIDINE [Concomitant]
     Dosage: TOTAL DAILY DOSE : 40 MG
     Dates: start: 20110822
  15. EPERISONE HYDROCHLORIDE [Concomitant]
     Dosage: TOTAL DAILY DOSE : 150 MG
     Dates: start: 20110808
  16. DICLOFENAC SODIUM [Concomitant]
     Dosage: TOTAL DAILY DOSE : 50 MG
     Dates: start: 20110813
  17. CELECOXIB [Concomitant]
     Dosage: TOTAL DAILY DOSE : 400 MG
     Dates: start: 20101108
  18. KETOPROFEN [Concomitant]
     Dosage: DAILY DOSE:50MG
     Dates: start: 20110808, end: 20110812
  19. LOXOPROFEN SODIUM HYDRATE [Concomitant]
     Dosage: TOTAL DAILY DOSE : 180 MG
     Dates: start: 20110808

REACTIONS (5)
  - INFECTIOUS PLEURAL EFFUSION [None]
  - STAPHYLOCOCCAL SEPSIS [None]
  - PSOAS ABSCESS [None]
  - PERICARDITIS [None]
  - ARTHRITIS BACTERIAL [None]
